FAERS Safety Report 9299367 (Version 2)
Quarter: 2013Q4

REPORT INFORMATION
  Report Type: Spontaneous
  Country: US (occurrence: US)
  Receive Date: 20130520
  Receipt Date: 20131108
  Transmission Date: 20140711
  Serious: Yes (Hospitalization)
  Sender: FDA-Public Use
  Company Number: US-B.I. PHARMACEUTICALS,INC./RIDGEFIELD-2013-BI-13749BP

PATIENT
  Age: 59 Year
  Sex: Female
  Weight: 81.65 kg

DRUGS (13)
  1. PRADAXA [Suspect]
     Indication: ANTICOAGULANT THERAPY
     Dosage: 300 MG
     Route: 048
     Dates: start: 201109, end: 201201
  2. PRADAXA [Suspect]
     Indication: ATRIAL FIBRILLATION
  3. PRADAXA [Suspect]
     Indication: ATRIAL FLUTTER
  4. GLUCOVANCE [Concomitant]
  5. PAXIL [Concomitant]
     Dosage: 40 MG
  6. AMITRIPTYLINE [Concomitant]
     Dosage: 10 MG
  7. SYNTHROID [Concomitant]
     Indication: HYPOTHYROIDISM
     Dosage: 75 MCG
  8. AMIODARONE [Concomitant]
     Indication: HEART RATE ABNORMAL
     Dosage: 200 MG
  9. LOSARTAN [Concomitant]
     Dosage: 25 MG
  10. DIGOXIN [Concomitant]
     Indication: ATRIAL FLUTTER
  11. COREG [Concomitant]
     Indication: HEART RATE IRREGULAR
  12. ALPHAGAN DROPS [Concomitant]
  13. COSOPT [Concomitant]

REACTIONS (2)
  - Gastrointestinal haemorrhage [Unknown]
  - Anaemia [Unknown]
